FAERS Safety Report 9159333 (Version 1)
Quarter: 2013Q1

REPORT INFORMATION
  Report Type: Spontaneous
  Country: GB (occurrence: None)
  Receive Date: 20130212
  Receipt Date: 20130212
  Transmission Date: 20140127
  Serious: Yes (Other)
  Sender: FDA-Public Use
  Company Number: 2013-02131

PATIENT
  Age: 53 Year
  Sex: Male

DRUGS (4)
  1. ISOSORBIDE MONONITRATE (AELLC) (ISOSORBIDE MONONITRATE) TABLET, 10MG [Suspect]
     Indication: PROPHYLAXIS
     Dosage: 10 MG, BID, ONE AT 8AM AND ONE AT 2PM, ORAL
     Route: 048
     Dates: start: 20121022
  2. ASPIRIN (ACETYLSALICYLIC ACID) [Concomitant]
  3. BISOPROLOL (BISOPROLOL) [Concomitant]
  4. ATORVASTATIN (ATORVASTATIN) [Concomitant]

REACTIONS (3)
  - Cardiac disorder [None]
  - Paraesthesia [None]
  - Arrhythmia [None]
